FAERS Safety Report 21020189 (Version 2)
Quarter: 2022Q4

REPORT INFORMATION
  Report Type: Spontaneous
  Country: US (occurrence: US)
  Receive Date: 20220628
  Receipt Date: 20221006
  Transmission Date: 20230113
  Serious: No
  Sender: FDA-Public Use
  Company Number: US-BoehringerIngelheim-2022-BI-178931

PATIENT
  Sex: Female

DRUGS (1)
  1. SPIRIVA HANDIHALER [Suspect]
     Active Substance: TIOTROPIUM BROMIDE MONOHYDRATE
     Indication: Chronic obstructive pulmonary disease
     Dosage: 1 CAPSULE, 2 INHALATIONS
     Dates: start: 2021

REACTIONS (2)
  - Intentional overdose [Unknown]
  - Device issue [Unknown]
